FAERS Safety Report 21962248 (Version 3)
Quarter: 2024Q1

REPORT INFORMATION
  Report Type: Report from Study
  Country: US (occurrence: US)
  Receive Date: 20230207
  Receipt Date: 20240207
  Transmission Date: 20240410
  Serious: No
  Sender: FDA-Public Use
  Company Number: US-ORG100014127-2021000392

PATIENT
  Age: 61 Year
  Sex: Female

DRUGS (18)
  1. LYSODREN [Suspect]
     Active Substance: MITOTANE
     Indication: Carcinoid tumour
     Dosage: 4 TABLETS A DAY
     Dates: start: 20201017
  2. LYSODREN [Suspect]
     Active Substance: MITOTANE
     Indication: Carcinoid tumour
     Dosage: 3000 MG BID
     Route: 048
     Dates: start: 20201018, end: 2021
  3. LYSODREN [Suspect]
     Active Substance: MITOTANE
     Indication: Carcinoid tumour
     Dosage: 4 TABLETS A DAY WITH ONDANSETRON
     Route: 048
     Dates: start: 2021
  4. LYSODREN [Suspect]
     Active Substance: MITOTANE
     Indication: Carcinoid tumour
     Dosage: 4 TABLETS A DAY WITH ONDANSETRON
     Route: 048
     Dates: start: 20221017, end: 20230407
  5. LYSODREN [Suspect]
     Active Substance: MITOTANE
     Indication: Carcinoid tumour
     Route: 048
     Dates: start: 20230408, end: 20230515
  6. LYSODREN [Suspect]
     Active Substance: MITOTANE
     Indication: Carcinoid tumour
     Route: 048
     Dates: start: 20230518
  7. AMLODIPINE [Concomitant]
     Active Substance: AMLODIPINE BESYLATE
     Indication: Product used for unknown indication
     Dosage: UNKNOWN
     Route: 065
  8. ATORVASTATIN [Concomitant]
     Active Substance: ATORVASTATIN
     Indication: Product used for unknown indication
     Dosage: UNKNOWN
     Route: 065
  9. BENAZEPRIL [Concomitant]
     Active Substance: BENAZEPRIL HYDROCHLORIDE
     Indication: Product used for unknown indication
     Dosage: UNKNOWN
     Route: 065
  10. ELIQUIS [Concomitant]
     Active Substance: APIXABAN
     Indication: Product used for unknown indication
     Dosage: UNKNOWN
     Route: 065
  11. GABAPENTIN [Concomitant]
     Active Substance: GABAPENTIN
     Indication: Product used for unknown indication
     Dosage: UNKNOWN
     Route: 065
  12. HYDROCHLROT [Concomitant]
     Indication: Product used for unknown indication
     Dosage: UNKNOWN
     Route: 065
  13. A-HYDROCORT [Concomitant]
     Active Substance: HYDROCORTISONE SODIUM SUCCINATE
     Indication: Product used for unknown indication
     Dosage: UNKNOWN
     Route: 065
  14. ONDANSETRON [Concomitant]
     Active Substance: ONDANSETRON
     Indication: Product used for unknown indication
     Dosage: TAKEN WITH EACH DOSE OF LYSODREN
     Route: 065
     Dates: start: 20201017
  15. SPIRONOLACTONE [Concomitant]
     Active Substance: SPIRONOLACTONE
     Indication: Product used for unknown indication
     Dosage: UNKNOWN
     Route: 065
  16. IRON TAB 18 mg [Concomitant]
     Indication: Product used for unknown indication
     Dosage: UNKNOWN
     Route: 065
  17. Vitamin B12 100?g [Concomitant]
     Indication: Product used for unknown indication
     Dosage: UNKNOWN
     Route: 065
  18. HEPARIN LOCK INJ 10UNT/ML [Concomitant]
     Indication: Product used for unknown indication
     Dosage: 10UNT/ML

REACTIONS (5)
  - Malaise [Not Recovered/Not Resolved]
  - Vomiting [Unknown]
  - Diarrhoea [Not Recovered/Not Resolved]
  - Nausea [Not Recovered/Not Resolved]
  - Asthenia [Not Recovered/Not Resolved]

NARRATIVE: CASE EVENT DATE: 20210504
